FAERS Safety Report 4323674-2 (Version None)
Quarter: 2004Q1

REPORT INFORMATION
  Report Type: 
  Country: None (occurrence: None)
  Receive Date: 20040325
  Receipt Date: 20040325
  Transmission Date: 20041129
  Serious: Yes (Life-Threatening, Hospitalization)
  Sender: FDA-Public Use
  Company Number: None

PATIENT
  Age: 64 Year
  Sex: Male
  Weight: 124.1 kg

DRUGS (22)
  1. NAPROXEN [Suspect]
  2. SURE STRIP GLUCOSE TEST STRIP [Concomitant]
  3. GLYBURIDE [Concomitant]
  4. ENALAPRIL MALEATE [Concomitant]
  5. SIMVASTATIN [Concomitant]
  6. DOCUSATE CA [Concomitant]
  7. LANCET [Concomitant]
  8. SENNOSIDES [Concomitant]
  9. COUMADIN [Concomitant]
  10. TRAMADOL HCL [Concomitant]
  11. NON-VA ISSUED MEDS A OTC [Concomitant]
  12. NAPROXEN [Concomitant]
  13. ACETAMINOPHEN [Concomitant]
  14. ZERABEPRAZOLE [Concomitant]
  15. DOCUSATE NA [Concomitant]
  16. APAP 325/SOTALBITAL 50/CAFF [Concomitant]
  17. CYCLOBENZAPRINE HCL [Concomitant]
  18. METFORMIN HCL [Concomitant]
  19. VERAPAMIL HCL [Concomitant]
  20. LANOXIN [Concomitant]
  21. FUROSEMIDE [Concomitant]
  22. LISINOPRIL [Concomitant]

REACTIONS (1)
  - GASTROINTESTINAL HAEMORRHAGE [None]
